FAERS Safety Report 10058081 (Version 1)
Quarter: 2014Q2

REPORT INFORMATION
  Report Type: Spontaneous
  Country: US (occurrence: US)
  Receive Date: 20140404
  Receipt Date: 20140404
  Transmission Date: 20141212
  Serious: No
  Sender: FDA-Public Use
  Company Number: US-PFIZER INC-2014094224

PATIENT
  Sex: Female

DRUGS (4)
  1. ADVIL [Suspect]
     Indication: PAIN
     Dosage: UNK (ONE OR MAXIMUM 2 PER DAY)
  2. ADVIL [Suspect]
     Indication: INFLAMMATION
  3. ADVIL [Suspect]
     Indication: PAIN
     Dosage: UNK
  4. ADVIL [Suspect]
     Indication: INFLAMMATION

REACTIONS (1)
  - Gastric disorder [Unknown]
